FAERS Safety Report 9597027 (Version 2)
Quarter: 2013Q4

REPORT INFORMATION
  Report Type: Spontaneous
  Country: US (occurrence: US)
  Receive Date: 20131004
  Receipt Date: 20131004
  Transmission Date: 20140711
  Serious: Yes (Other)
  Sender: FDA-Public Use
  Company Number: US-ABBVIE-13P-163-1109013-00

PATIENT
  Age: 71 Year
  Sex: Male
  Weight: 90.8 kg

DRUGS (25)
  1. LUPRON DEPOT [Suspect]
     Indication: PROSTATE CANCER
     Dosage: ONCE
     Route: 030
     Dates: start: 20120905, end: 20120905
  2. LUPRON DEPOT [Suspect]
     Indication: PROSTATE CANCER
     Dosage: ONCE
     Route: 030
     Dates: start: 20121207, end: 20121207
  3. VICODIN [Concomitant]
     Indication: ARTHRALGIA
     Dates: start: 2008
  4. TRAMADOL HYDROCHLORIDE [Concomitant]
     Indication: ARTHRALGIA
     Route: 048
     Dates: start: 20120416, end: 20130429
  5. CORTISONE ACETATE [Concomitant]
     Indication: ARTHRALGIA
     Dosage: 50 MG/ML
     Dates: start: 2008
  6. CENTRUM SILVER [Concomitant]
     Indication: PRODUCT USED FOR UNKNOWN INDICATION
     Dates: start: 2008
  7. NORVASC [Concomitant]
     Indication: PRODUCT USED FOR UNKNOWN INDICATION
     Route: 048
     Dates: start: 2008
  8. COZAAR [Concomitant]
     Indication: PRODUCT USED FOR UNKNOWN INDICATION
     Route: 048
     Dates: start: 2008
  9. ALEVE [Concomitant]
     Indication: PRODUCT USED FOR UNKNOWN INDICATION
     Dates: start: 2008
  10. LIPITOR [Concomitant]
     Indication: BLOOD CHOLESTEROL INCREASED
     Route: 048
     Dates: start: 20130604
  11. SOLARAZE [Concomitant]
     Indication: PRODUCT USED FOR UNKNOWN INDICATION
     Route: 061
  12. CENTRATEX [Concomitant]
     Indication: PRODUCT USED FOR UNKNOWN INDICATION
  13. TAMSULOSIN HYDROCHLORIDE [Concomitant]
     Indication: PRODUCT USED FOR UNKNOWN INDICATION
     Route: 048
  14. FLOMAX [Concomitant]
     Indication: PRODUCT USED FOR UNKNOWN INDICATION
     Route: 048
  15. FLOMAX [Concomitant]
     Route: 048
  16. LOSARTAN POTASSIUM [Concomitant]
     Indication: PRODUCT USED FOR UNKNOWN INDICATION
     Route: 048
  17. GENTEAL [Concomitant]
     Indication: PRODUCT USED FOR UNKNOWN INDICATION
  18. IBUPROFEN [Concomitant]
     Indication: PRODUCT USED FOR UNKNOWN INDICATION
     Route: 048
  19. VITAMIN E [Concomitant]
     Indication: PRODUCT USED FOR UNKNOWN INDICATION
     Route: 048
  20. GABAPENTIN [Concomitant]
     Indication: PRODUCT USED FOR UNKNOWN INDICATION
     Route: 048
  21. CLOBETASOL PROPIONATE [Concomitant]
     Indication: PRODUCT USED FOR UNKNOWN INDICATION
     Route: 061
  22. CASODEX [Concomitant]
     Indication: PRODUCT USED FOR UNKNOWN INDICATION
     Route: 048
  23. BITARTRATE [Concomitant]
     Indication: PRODUCT USED FOR UNKNOWN INDICATION
     Dosage: 325 MG-7.5 MG
     Route: 048
  24. PQRS INFLUENZA VACCINATION [Concomitant]
     Indication: IMMUNISATION
  25. HYDROCODONE/ACETAMINOPHEN [Concomitant]
     Indication: PRODUCT USED FOR UNKNOWN INDICATION

REACTIONS (12)
  - Gait disturbance [Not Recovered/Not Resolved]
  - Muscular weakness [Not Recovered/Not Resolved]
  - Pain in extremity [Not Recovered/Not Resolved]
  - Scrotal pain [Unknown]
  - Blood cholesterol increased [Not Recovered/Not Resolved]
  - Blood triglycerides increased [Not Recovered/Not Resolved]
  - Hot flush [Not Recovered/Not Resolved]
  - Low density lipoprotein increased [Not Recovered/Not Resolved]
  - Micturition urgency [Unknown]
  - Urinary retention [Unknown]
  - Organic erectile dysfunction [Unknown]
  - Metastases to spine [Unknown]
